FAERS Safety Report 24305612 (Version 1)
Quarter: 2024Q3

REPORT INFORMATION
  Report Type: Spontaneous
  Country: US (occurrence: US)
  Receive Date: 20240911
  Receipt Date: 20240911
  Transmission Date: 20241017
  Serious: No
  Sender: TAMARANG PHARMACEUTICALS
  Company Number: US-Tamarang, S.A.-2161463

PATIENT
  Age: 5 Year
  Sex: Male
  Weight: 16.8 kg

DRUGS (4)
  1. ROCURONIUM BROMIDE [Suspect]
     Active Substance: ROCURONIUM BROMIDE
     Route: 017
     Dates: start: 20230912, end: 20230912
  2. SUGAMMADEX [Interacting]
     Active Substance: SUGAMMADEX
     Route: 040
     Dates: start: 20230912, end: 20230912
  3. sodium chloride 0.9% IV soln [Concomitant]
     Route: 042
     Dates: start: 20230912, end: 20230912
  4. EPINEPHRINE [Concomitant]
     Active Substance: EPINEPHRINE
     Route: 042
     Dates: start: 20230912, end: 20230912

REACTIONS (1)
  - Drug ineffective [Recovered/Resolved]

NARRATIVE: CASE EVENT DATE: 20230912
